FAERS Safety Report 26189574 (Version 1)
Quarter: 2025Q4

REPORT INFORMATION
  Report Type: Spontaneous
  Country: CN (occurrence: CN)
  Receive Date: 20251223
  Receipt Date: 20251223
  Transmission Date: 20260117
  Serious: Yes (Hospitalization, Other)
  Sender: BEIGENE
  Company Number: CN-BEONEMEDICINES-BGN-2025-023087

PATIENT
  Age: 79 Year
  Sex: Male
  Weight: 59 kg

DRUGS (12)
  1. TISLELIZUMAB [Suspect]
     Active Substance: TISLELIZUMAB
     Indication: Oesophageal carcinoma
     Dosage: UNK
  2. TISLELIZUMAB [Suspect]
     Active Substance: TISLELIZUMAB
     Indication: Colon cancer
     Dosage: UNK
  3. TISLELIZUMAB [Suspect]
     Active Substance: TISLELIZUMAB
     Dosage: 200 MILLIGRAM, D1, Q3WK
     Route: 041
     Dates: start: 20251017, end: 20251028
  4. TISLELIZUMAB [Suspect]
     Active Substance: TISLELIZUMAB
     Dosage: 200 MILLIGRAM, D1, Q3WK
     Dates: start: 20251017, end: 20251028
  5. TISLELIZUMAB [Suspect]
     Active Substance: TISLELIZUMAB
     Dosage: 200 MILLIGRAM, D1, Q3WK
     Route: 041
     Dates: start: 20251017, end: 20251028
  6. TISLELIZUMAB [Suspect]
     Active Substance: TISLELIZUMAB
     Dosage: 200 MILLIGRAM, D1, Q3WK
     Dates: start: 20251017, end: 20251028
  7. PACLITAXEL [Concomitant]
     Active Substance: PACLITAXEL
     Indication: Oesophageal carcinoma
     Dosage: UNK
  8. PACLITAXEL [Concomitant]
     Active Substance: PACLITAXEL
     Indication: Colon cancer
  9. CISPLATIN [Concomitant]
     Active Substance: CISPLATIN
     Indication: Oesophageal carcinoma
     Dosage: UNK
  10. CISPLATIN [Concomitant]
     Active Substance: CISPLATIN
     Indication: Colon cancer
  11. DOCETAXEL [Concomitant]
     Active Substance: DOCETAXEL
     Indication: Oesophageal carcinoma
     Dosage: 90 MILLIGRAM, D1, Q3WK
     Dates: start: 20251017
  12. DOCETAXEL [Concomitant]
     Active Substance: DOCETAXEL
     Indication: Colon cancer

REACTIONS (3)
  - Immune-mediated lung disease [Recovering/Resolving]
  - Neoplasm recurrence [Unknown]
  - Neoplasm progression [Unknown]

NARRATIVE: CASE EVENT DATE: 20251009
